FAERS Safety Report 5836232-5 (Version None)
Quarter: 2008Q3

REPORT INFORMATION
  Report Type: 
  Country: None (occurrence: None)
  Receive Date: 20080807
  Receipt Date: 20080729
  Transmission Date: 20090109
  Serious: Yes (Hospitalization, Other)
  Sender: FDA-Public Use
  Company Number: GB-RANBAXY-2007RR-07130

PATIENT

DRUGS (3)
  1. CODEINE SUL TAB [Suspect]
  2. ACETAMINOPHEN [Suspect]
     Dosage: 48 G, UNK
     Route: 048
  3. PAROXETINE HCL [Suspect]

REACTIONS (3)
  - HEPATOTOXICITY [None]
  - LIVER DISORDER [None]
  - OVERDOSE [None]
